FAERS Safety Report 5901003-8 (Version None)
Quarter: 2008Q3

REPORT INFORMATION
  Report Type: 
  Country: None (occurrence: None)
  Receive Date: 20080829
  Receipt Date: 20080715
  Transmission Date: 20090109
  Serious: No
  Sender: FDA-Public Use
  Company Number: PHEH2008US06319

PATIENT
  Age: 8 Year
  Sex: Female

DRUGS (1)
  1. EXJADE [Suspect]

REACTIONS (3)
  - DIARRHOEA [None]
  - HAEMATURIA [None]
  - PYREXIA [None]
